FAERS Safety Report 8901789 (Version 1)
Quarter: 2012Q4

REPORT INFORMATION
  Report Type: Spontaneous
  Country: US (occurrence: None)
  Receive Date: 20121105
  Receipt Date: 20121105
  Transmission Date: 20130627
  Serious: Yes (Death, Hospitalization)
  Sender: FDA-Public Use
  Company Number: UTC-024758

PATIENT
  Age: 44 Year
  Sex: Female
  Weight: 59.09 kg

DRUGS (4)
  1. REMODULIN [Suspect]
     Indication: PULMONARY HYPERTENSION
  2. REMODULIN [Suspect]
     Indication: PULMONARY HYPERTENSION
  3. COUMADIN (WARFARIN SODIUM) [Concomitant]
  4. AMIODARONE [Concomitant]

REACTIONS (1)
  - Death [None]
